FAERS Safety Report 17728483 (Version 1)
Quarter: 2020Q2

REPORT INFORMATION
  Report Type: Spontaneous
  Country: US (occurrence: US)
  Receive Date: 20200430
  Receipt Date: 20200430
  Transmission Date: 20200714
  Serious: Yes (Death, Hospitalization, Other)
  Sender: FDA-Public Use
  Company Number: US-PFIZER INC-2020164136

PATIENT
  Age: 59 Year
  Sex: Female

DRUGS (5)
  1. RITUXIMAB. [Suspect]
     Active Substance: RITUXIMAB
     Dosage: 1 UNK (SECOND DOSE/ONE MONTH (INSTEAD OF TWO WEEKS) AFTER THE FIRST DOSE)INFUSION,
  2. GANCICLOVIR. [Concomitant]
     Active Substance: GANCICLOVIR
     Indication: CYTOMEGALOVIRUS INFECTION
  3. RITUXIMAB. [Suspect]
     Active Substance: RITUXIMAB
     Indication: GRANULOMATOSIS WITH POLYANGIITIS
     Dosage: 1 G, INFUSION,
  4. GANCICLOVIR. [Concomitant]
     Active Substance: GANCICLOVIR
     Indication: IMMUNOSUPPRESSION
     Dosage: UNK, ID
     Route: 023
  5. PREDNISONE. [Concomitant]
     Active Substance: PREDNISONE
     Indication: PNEUMOCYSTIS JIROVECII PNEUMONIA
     Dosage: 1 MG/KG (TAPER OVER SIX MONTHS)

REACTIONS (6)
  - Nausea [Unknown]
  - Escherichia bacteraemia [Fatal]
  - Acute respiratory failure [Fatal]
  - Chills [Unknown]
  - Hypogammaglobulinaemia [Unknown]
  - Septic shock [Fatal]
